FAERS Safety Report 17839764 (Version 8)
Quarter: 2020Q4

REPORT INFORMATION
  Report Type: Report from Study
  Country: US (occurrence: US)
  Receive Date: 20200529
  Receipt Date: 20201231
  Transmission Date: 20210113
  Serious: Yes (Other)
  Sender: FDA-Public Use
  Company Number: NVSC2020US146331

PATIENT
  Sex: Female

DRUGS (1)
  1. ENTRESTO [Suspect]
     Active Substance: SACUBITRIL\VALSARTAN
     Indication: CARDIAC FAILURE CHRONIC
     Dosage: UNK
     Route: 065

REACTIONS (11)
  - Confusional state [Unknown]
  - Muscle spasms [Unknown]
  - Nausea [Unknown]
  - Myocardial infarction [Unknown]
  - Energy increased [Unknown]
  - Fatigue [Unknown]
  - Malaise [Unknown]
  - Arthralgia [Recovering/Resolving]
  - Poor quality sleep [Unknown]
  - Weight decreased [Recovering/Resolving]
  - Depressed mood [Unknown]
